FAERS Safety Report 4908220-4 (Version None)
Quarter: 2006Q1

REPORT INFORMATION
  Report Type: 
  Country: None (occurrence: None)
  Receive Date: 20060210
  Receipt Date: 20051014
  Transmission Date: 20060701
  Serious: Yes (Death, Hospitalization)
  Sender: FDA-Public Use
  Company Number: US-MERCK-0510USA07255

PATIENT
  Age: 48 Year
  Sex: Male
  Weight: 82 kg

DRUGS (2)
  1. VIOXX [Suspect]
     Indication: PAIN
     Route: 048
     Dates: start: 20000501, end: 20001227
  2. VIOXX [Suspect]
     Indication: BACK INJURY
     Route: 048
     Dates: start: 20000501, end: 20001227

REACTIONS (2)
  - DEATH [None]
  - MYOCARDIAL INFARCTION [None]
